FAERS Safety Report 24810558 (Version 1)
Quarter: 2025Q1

REPORT INFORMATION
  Report Type: Spontaneous
  Country: AU (occurrence: AU)
  Receive Date: 20250106
  Receipt Date: 20250106
  Transmission Date: 20250409
  Serious: Yes (Other)
  Sender: PFIZER
  Company Number: AU-PFIZER INC-PV202500000099

PATIENT
  Sex: Female

DRUGS (1)
  1. DEPO-PROVERA [Suspect]
     Active Substance: MEDROXYPROGESTERONE ACETATE
     Indication: Contraception

REACTIONS (8)
  - Multiple fractures [Unknown]
  - Rib fracture [Unknown]
  - Patella fracture [Unknown]
  - Foot fracture [Unknown]
  - Wrist fracture [Unknown]
  - Osteoporosis [Unknown]
  - Middle insomnia [Unknown]
  - Discomfort [Unknown]
